FAERS Safety Report 6576896-4 (Version None)
Quarter: 2010Q1

REPORT INFORMATION
  Report Type: 
  Country: None (occurrence: None)
  Receive Date: 20100210
  Receipt Date: 20100202
  Transmission Date: 20100710
  Serious: Yes (Death, Hospitalization)
  Sender: FDA-Public Use
  Company Number: B0608340A

PATIENT
  Sex: Female
  Weight: 46 kg

DRUGS (8)
  1. TYKERB [Suspect]
     Route: 048
     Dates: start: 20091009, end: 20100118
  2. XELODA [Concomitant]
     Indication: DRUG USE FOR UNKNOWN INDICATION
     Dosage: 4800MG PER DAY
     Route: 048
     Dates: start: 20091009, end: 20100118
  3. LOPEMIN [Concomitant]
     Route: 048
  4. GASTER D [Concomitant]
     Indication: GASTRITIS
     Route: 048
     Dates: end: 20100118
  5. URSO 250 [Concomitant]
     Indication: HEPATIC CYST
     Route: 048
     Dates: end: 20100118
  6. LOXONIN [Concomitant]
  7. PYDOXAL [Concomitant]
     Route: 048
     Dates: end: 20100118
  8. VOLTAREN [Concomitant]
     Route: 061
     Dates: end: 20100118

REACTIONS (6)
  - CONVULSION [None]
  - DERMATITIS ACNEIFORM [None]
  - DIARRHOEA [None]
  - DYSKINESIA [None]
  - MYOCARDIAL INFARCTION [None]
  - NAUSEA [None]
